FAERS Safety Report 23672100 (Version 1)
Quarter: 2024Q1

REPORT INFORMATION
  Report Type: Spontaneous
  Country: DE (occurrence: DE)
  Receive Date: 20240326
  Receipt Date: 20240326
  Transmission Date: 20240410
  Serious: Yes (Other)
  Sender: FDA-Public Use
  Company Number: DE-NOVITIUMPHARMA-2024DENVP00309

PATIENT
  Age: 79 Year
  Sex: Female

DRUGS (2)
  1. LACOSAMIDE [Suspect]
     Active Substance: LACOSAMIDE
     Indication: Partial seizures
  2. LACOSAMIDE [Suspect]
     Active Substance: LACOSAMIDE

REACTIONS (1)
  - Renal impairment [Unknown]
